FAERS Safety Report 15112123 (Version 1)
Quarter: 2018Q3

REPORT INFORMATION
  Report Type: Spontaneous
  Country: IT (occurrence: IT)
  Receive Date: 20180705
  Receipt Date: 20180705
  Transmission Date: 20181010
  Serious: Yes (Other)
  Sender: FDA-Public Use
  Company Number: IT-TEVA-2018-IT-919780

PATIENT
  Age: 37 Year
  Sex: Male

DRUGS (8)
  1. OLANZAPINE. [Suspect]
     Active Substance: OLANZAPINE
     Indication: PRODUCT USED FOR UNKNOWN INDICATION
     Route: 048
     Dates: start: 20180408, end: 20180408
  2. VATRAN [Suspect]
     Active Substance: DIAZEPAM
     Indication: PRODUCT USED FOR UNKNOWN INDICATION
     Route: 048
     Dates: start: 20180408, end: 20180408
  3. OLANZAPINE. [Suspect]
     Active Substance: OLANZAPINE
     Route: 048
  4. EN [Suspect]
     Active Substance: DELORAZEPAM
     Indication: PRODUCT USED FOR UNKNOWN INDICATION
     Dosage: DOSAGE FORM: SOLUTION
     Route: 048
     Dates: start: 20180408, end: 20180408
  5. EN [Suspect]
     Active Substance: DELORAZEPAM
     Dosage: DOSAGE FORM: SOLUTION
     Route: 048
     Dates: start: 20180408, end: 20180408
  6. HALDOL [Suspect]
     Active Substance: HALOPERIDOL
     Indication: PRODUCT USED FOR UNKNOWN INDICATION
     Dosage: DOSAGE FORM: SOLUTION
     Route: 048
  7. HALDOL [Suspect]
     Active Substance: HALOPERIDOL
     Indication: PRODUCT USED FOR UNKNOWN INDICATION
     Dosage: DOSAGE FORM: SOLUTION
     Route: 048
     Dates: start: 20180408, end: 20180408
  8. VATRAN [Suspect]
     Active Substance: DIAZEPAM
     Route: 048
     Dates: start: 20180408, end: 20180408

REACTIONS (3)
  - Intentional self-injury [Unknown]
  - Intentional overdose [Unknown]
  - Sopor [Unknown]

NARRATIVE: CASE EVENT DATE: 20180408
